FAERS Safety Report 9624187 (Version 1)
Quarter: 2013Q4

REPORT INFORMATION
  Report Type: Spontaneous
  Country: US (occurrence: US)
  Receive Date: 20131015
  Receipt Date: 20131015
  Transmission Date: 20140711
  Serious: No
  Sender: FDA-Public Use
  Company Number: US-UPSHER-SMITH LABORATORIES, INC.-13003145

PATIENT
  Age: 77 Year
  Sex: Female

DRUGS (5)
  1. KLOR-CON M [Suspect]
     Indication: BLOOD POTASSIUM DECREASED
     Dosage: 10 MEQ, QD
     Route: 048
     Dates: start: 20130818, end: 20130830
  2. LASIX                              /00032601/ [Concomitant]
     Dosage: UNK
  3. METOPROLOL [Concomitant]
     Dosage: UNK
  4. WARFARIN [Concomitant]
     Dosage: UNK
  5. DIGOXIN [Concomitant]
     Dosage: UNK

REACTIONS (1)
  - Blood pressure increased [Recovered/Resolved]
